FAERS Safety Report 9393009 (Version 1)
Quarter: 2013Q3

REPORT INFORMATION
  Report Type: Report from Study
  Country: AR (occurrence: AR)
  Receive Date: 20130710
  Receipt Date: 20130710
  Transmission Date: 20140515
  Serious: Yes (Other)
  Sender: FDA-Public Use
  Company Number: PHHY2013AR072912

PATIENT
  Sex: Male

DRUGS (2)
  1. SINTROM [Suspect]
     Indication: COAGULOPATHY
     Dosage: 4 MG, 1 OR 2 DAILY
     Route: 048
  2. EXFORGE [Suspect]
     Indication: BLOOD PRESSURE ABNORMAL
     Dosage: (160 MG VALS/ 10 MG AMLO) 1 DAILY OR 2 DAILY
     Route: 048

REACTIONS (3)
  - Feeling abnormal [Not Recovered/Not Resolved]
  - Weight increased [Not Recovered/Not Resolved]
  - Sensation of heaviness [Not Recovered/Not Resolved]
